FAERS Safety Report 18964549 (Version 1)
Quarter: 2021Q1

REPORT INFORMATION
  Report Type: Spontaneous
  Country: US (occurrence: US)
  Receive Date: 20210303
  Receipt Date: 20210303
  Transmission Date: 20210420
  Serious: No
  Sender: FDA-Public Use
  Company Number: US-AMNEAL PHARMACEUTICALS-2020-AMRX-01496

PATIENT
  Age: 78 Year
  Sex: Female
  Weight: 63.5 kg

DRUGS (15)
  1. GOCOVRI [Suspect]
     Active Substance: AMANTADINE
     Indication: DYSKINESIA
     Dosage: 137 MILLIGRAM, BEDTIME
     Route: 048
     Dates: start: 20200714, end: 20200720
  2. RYTARY [Suspect]
     Active Substance: CARBIDOPA\LEVODOPA
     Indication: PARKINSON^S DISEASE
     Dosage: 23.75/95 MG, 1 CAPSULES, TID
     Route: 048
  3. GOCOVRI [Suspect]
     Active Substance: AMANTADINE
     Dosage: 137 MILLIGRAM, 1X/DAY
     Route: 048
     Dates: start: 20200730, end: 2020
  4. GOCOVRI [Suspect]
     Active Substance: AMANTADINE
     Dosage: 274 MG 2 CAPSULES, 1X/DAY
     Route: 048
     Dates: start: 20200721, end: 20200729
  5. FAMOTIDINE. [Concomitant]
     Active Substance: FAMOTIDINE
     Indication: PRODUCT USED FOR UNKNOWN INDICATION
     Route: 065
  6. METOPROLOL. [Concomitant]
     Active Substance: METOPROLOL
     Indication: PRODUCT USED FOR UNKNOWN INDICATION
     Dosage: UNK
     Route: 065
  7. ATORVASTATIN [Concomitant]
     Active Substance: ATORVASTATIN
     Indication: PRODUCT USED FOR UNKNOWN INDICATION
     Dosage: UNK
     Route: 065
  8. RYTARY [Suspect]
     Active Substance: CARBIDOPA\LEVODOPA
     Dosage: 23.75/95 MG, 2 CAPSULES, TID
     Route: 048
     Dates: start: 20200520, end: 2020
  9. ROPINIROLE. [Concomitant]
     Active Substance: ROPINIROLE
     Indication: PRODUCT USED FOR UNKNOWN INDICATION
     Route: 065
  10. RYTARY [Suspect]
     Active Substance: CARBIDOPA\LEVODOPA
     Dosage: 2 CAPSULES, QID
     Route: 048
     Dates: start: 2020
  11. GOCOVRI [Suspect]
     Active Substance: AMANTADINE
     Dosage: 137 MILLIGRAM, 1X/DAY
     Route: 048
     Dates: start: 2020
  12. RYTARY [Suspect]
     Active Substance: CARBIDOPA\LEVODOPA
     Dosage: 23.75/95 MG, 3 CAPSULES, TID
     Route: 048
     Dates: start: 20200608
  13. GOCOVRI [Suspect]
     Active Substance: AMANTADINE
     Dosage: 274 MILLIGRAM, BEDTIME
     Route: 048
     Dates: start: 2020, end: 2020
  14. GABAPENTIN. [Concomitant]
     Active Substance: GABAPENTIN
     Indication: PRODUCT USED FOR UNKNOWN INDICATION
     Route: 065
  15. LOSARTAN. [Concomitant]
     Active Substance: LOSARTAN
     Indication: PRODUCT USED FOR UNKNOWN INDICATION
     Route: 065

REACTIONS (14)
  - Therapeutic response shortened [Unknown]
  - Balance disorder [Not Recovered/Not Resolved]
  - Drug ineffective [Unknown]
  - Vision blurred [Not Recovered/Not Resolved]
  - Hallucination, visual [Recovered/Resolved]
  - Dyskinesia [Not Recovered/Not Resolved]
  - Alopecia [Not Recovered/Not Resolved]
  - Amnesia [Recovered/Resolved]
  - Feeling abnormal [Recovered/Resolved]
  - Dysarthria [Recovered/Resolved]
  - Poor quality sleep [Recovered/Resolved]
  - Insomnia [Recovered/Resolved]
  - Lethargy [Recovered/Resolved]
  - Somnolence [Recovered/Resolved]

NARRATIVE: CASE EVENT DATE: 2020
